FAERS Safety Report 4506794-9 (Version None)
Quarter: 2004Q4

REPORT INFORMATION
  Report Type: 
  Country: None (occurrence: None)
  Receive Date: 20041122
  Receipt Date: 20040830
  Transmission Date: 20050328
  Serious: Yes (Other)
  Sender: FDA-Public Use
  Company Number: US-GLAXOSMITHKLINE-A0523773A

PATIENT
  Age: 56 Year
  Sex: Male
  Weight: 105.9 kg

DRUGS (7)
  1. ADVAIR [Suspect]
     Indication: ASTHMA
     Dosage: 1PUFF TWICE PER DAY
     Route: 055
     Dates: start: 20040301
  2. ALLEGRA [Concomitant]
     Dosage: 180MG PER DAY
     Route: 048
     Dates: start: 20040426, end: 20040920
  3. ACIPHEX [Concomitant]
     Dosage: 20MG PER DAY
     Route: 048
     Dates: start: 20040210
  4. ALBUTEROL [Concomitant]
     Indication: ASTHMA
     Dosage: 2PUFF AS REQUIRED
     Route: 055
     Dates: start: 20040210
  5. SINGULAIR [Concomitant]
     Dosage: 10MG AT NIGHT
     Route: 048
     Dates: start: 20040920
  6. ASTELIN [Concomitant]
     Dosage: 1PUFF TWICE PER DAY
     Route: 045
     Dates: start: 20040920
  7. RHINOCORT [Concomitant]
     Dosage: 1PUFF PER DAY
     Route: 045
     Dates: start: 20040920

REACTIONS (4)
  - ANOSMIA [None]
  - DYSGEUSIA [None]
  - EPISTAXIS [None]
  - HYPOSMIA [None]
